FAERS Safety Report 4323064-2 (Version None)
Quarter: 2004Q1

REPORT INFORMATION
  Report Type: 
  Country: None (occurrence: None)
  Receive Date: 20040325
  Receipt Date: 20040322
  Transmission Date: 20041129
  Serious: Yes (Other)
  Sender: FDA-Public Use
  Company Number: 200413365GDDC

PATIENT
  Sex: Female

DRUGS (1)
  1. METRONIDAZOLE [Suspect]
     Dosage: DOSE: 1 TABLET
     Route: 048
     Dates: start: 20040306, end: 20040306

REACTIONS (3)
  - CHEST DISCOMFORT [None]
  - EMOTIONAL DISTRESS [None]
  - RASH [None]
